FAERS Safety Report 12733707 (Version 2)
Quarter: 2016Q3

REPORT INFORMATION
  Report Type: Spontaneous
  Country: US (occurrence: US)
  Receive Date: 20160912
  Receipt Date: 20160927
  Transmission Date: 20161109
  Serious: No
  Sender: FDA-Public Use
  Company Number: US-ASTRAZENECA-2016SE92973

PATIENT
  Age: 90 Year
  Sex: Female

DRUGS (2)
  1. BRILINTA [Suspect]
     Active Substance: TICAGRELOR
     Indication: MYOCARDIAL INFARCTION
     Route: 048
     Dates: start: 201608
  2. BRILINTA [Suspect]
     Active Substance: TICAGRELOR
     Indication: ACUTE CORONARY SYNDROME
     Route: 048
     Dates: start: 201608

REACTIONS (8)
  - Anxiety [Unknown]
  - Abdominal discomfort [Not Recovered/Not Resolved]
  - Chest discomfort [Unknown]
  - Fear [Unknown]
  - Malaise [Unknown]
  - Gastric ulcer [Not Recovered/Not Resolved]
  - Nervousness [Not Recovered/Not Resolved]
  - Pigmentation disorder [Not Recovered/Not Resolved]
